FAERS Safety Report 9174504 (Version 1)
Quarter: 2013Q1

REPORT INFORMATION
  Report Type: Spontaneous
  Country: US (occurrence: None)
  Receive Date: 20130313
  Receipt Date: 20130313
  Transmission Date: 20140127
  Serious: Yes (Other)
  Sender: FDA-Public Use
  Company Number: AUR-APL-2013-02191

PATIENT
  Age: 31 Year
  Sex: Female

DRUGS (4)
  1. MONTELUKAST [Suspect]
     Indication: ASTHMA
  2. ALBUTEROL (SALBUTAMOL) [Suspect]
  3. ADVAIR [Suspect]
  4. PREDNISONE (PREDNISONE) [Suspect]

REACTIONS (8)
  - Enterocolitis [None]
  - Asthma [None]
  - Respiratory failure [None]
  - Strongyloidiasis [None]
  - Lung infiltration [None]
  - Escherichia infection [None]
  - Blood culture positive [None]
  - Condition aggravated [None]
